FAERS Safety Report 12829314 (Version 2)
Quarter: 2016Q4

REPORT INFORMATION
  Report Type: Spontaneous
  Country: JP (occurrence: JP)
  Receive Date: 20161007
  Receipt Date: 20161010
  Transmission Date: 20170207
  Serious: Yes (Death, Hospitalization, Other)
  Sender: FDA-Public Use
  Company Number: JP-BRISTOL-MYERS SQUIBB COMPANY-BMS-2016-044136

PATIENT
  Age: 87 Year
  Sex: Female
  Weight: 40.3 kg

DRUGS (9)
  1. PIMOBENDAN [Concomitant]
     Active Substance: PIMOBENDAN
     Indication: CARDIAC FAILURE
     Dosage: 1.25 MG, BID
     Route: 048
     Dates: end: 20160601
  2. SAMSCA [Concomitant]
     Active Substance: TOLVAPTAN
     Indication: CARDIAC FAILURE
     Dosage: 2.75 MG, QD
     Route: 048
     Dates: end: 20160601
  3. FLUITRAN [Concomitant]
     Active Substance: TRICHLORMETHIAZIDE
     Indication: CARDIAC FAILURE
     Dosage: 1 MG, QD
     Route: 048
     Dates: end: 20160601
  4. LUPRAC [Concomitant]
     Active Substance: TORSEMIDE
     Indication: CARDIAC FAILURE
     Dosage: 8 MG, QD
     Route: 048
     Dates: end: 20160601
  5. BAYASPIRIN [Suspect]
     Active Substance: ASPIRIN
     Indication: MYOCARDIAL ISCHAEMIA
     Dosage: 100 MG, QD
     Route: 048
     Dates: end: 20160601
  6. LASIX [Concomitant]
     Active Substance: FUROSEMIDE
     Indication: CARDIAC FAILURE
     Dosage: 20 MG, QD
     Route: 048
     Dates: end: 20160601
  7. ELIQUIS [Suspect]
     Active Substance: APIXABAN
     Indication: CEREBROVASCULAR ACCIDENT PROPHYLAXIS
     Dosage: 2.5 MG, BID
     Route: 048
     Dates: start: 20150206, end: 20160601
  8. KALGUT [Concomitant]
     Active Substance: DENOPAMINE
     Indication: CARDIAC FAILURE
     Dosage: 10 MG, TID
     Route: 048
     Dates: end: 20160601
  9. BIOFERMIN                          /01617201/ [Concomitant]
     Active Substance: BACILLUS SUBTILIS\LACTOBACILLUS ACIDOPHILUS\STREPTOCOCCUS FAECAIS
     Indication: GASTROINTESTINAL DISORDER
     Dosage: 12 MG, TID
     Route: 048
     Dates: start: 20160530, end: 20160601

REACTIONS (5)
  - Transfusion [Unknown]
  - Nephrosclerosis [Fatal]
  - Nephrogenic anaemia [Fatal]
  - Gastrointestinal haemorrhage [Fatal]
  - Anaemia [Fatal]

NARRATIVE: CASE EVENT DATE: 20160530
